FAERS Safety Report 14663663 (Version 1)
Quarter: 2018Q1

REPORT INFORMATION
  Report Type: Spontaneous
  Country: US (occurrence: US)
  Receive Date: 20180321
  Receipt Date: 20180321
  Transmission Date: 20180509
  Serious: No
  Sender: FDA-Public Use
  Company Number: US-PFIZER INC-2018116639

PATIENT
  Age: 61 Year
  Sex: Male

DRUGS (1)
  1. LOPID [Suspect]
     Active Substance: GEMFIBROZIL
     Dosage: UNK

REACTIONS (2)
  - Myalgia [Unknown]
  - Drug hypersensitivity [Unknown]
